FAERS Safety Report 6391684-X (Version None)
Quarter: 2009Q4

REPORT INFORMATION
  Report Type: 
  Country: None (occurrence: None)
  Receive Date: 20091005
  Receipt Date: 20090921
  Transmission Date: 20100525
  Serious: Yes (Hospitalization)
  Sender: FDA-Public Use
  Company Number: 001721

PATIENT
  Sex: Female

DRUGS (5)
  1. VIMPAT [Suspect]
     Indication: EPILEPSY
     Dosage: (400 MG ORAL)(200 MG/DAY , ORAL)(400 MG/DAY ORAL)
     Route: 048
     Dates: end: 20090801
  2. VIMPAT [Suspect]
     Indication: EPILEPSY
     Dosage: (400 MG ORAL)(200 MG/DAY , ORAL)(400 MG/DAY ORAL)
     Route: 048
     Dates: start: 20090609
  3. LAMOTRIGINE [Concomitant]
  4. VALPROATE SODIUM [Concomitant]
  5. METHOTREXAT [Concomitant]

REACTIONS (5)
  - AGITATION [None]
  - ATAXIA [None]
  - DRUG INTOLERANCE [None]
  - IRRITABILITY [None]
  - VOMITING [None]
